FAERS Safety Report 4774446-6 (Version None)
Quarter: 2005Q3

REPORT INFORMATION
  Report Type: 
  Country: None (occurrence: None)
  Receive Date: 20050919
  Receipt Date: 20050919
  Transmission Date: 20060218
  Serious: Yes (Hospitalization)
  Sender: FDA-Public Use
  Company Number: None

PATIENT
  Sex: Female
  Weight: 58.0604 kg

DRUGS (1)
  1. TOPOTECAN 0.4 MG/M2 [Suspect]
     Indication: CERVIX CARCINOMA
     Dosage: 0.62 MG DAILY X 14D IV
     Route: 042
     Dates: start: 20050831, end: 20050907

REACTIONS (4)
  - ANAEMIA [None]
  - DIARRHOEA [None]
  - ESCHERICHIA URINARY TRACT INFECTION [None]
  - PYELONEPHRITIS [None]
